FAERS Safety Report 7043577-2 (Version None)
Quarter: 2010Q4

REPORT INFORMATION
  Report Type: 
  Country: None (occurrence: None)
  Receive Date: 20101013
  Receipt Date: 20101007
  Transmission Date: 20110411
  Serious: Yes (Death)
  Sender: FDA-Public Use
  Company Number: A0885469A

PATIENT
  Age: 71 Year
  Sex: Male

DRUGS (14)
  1. AVANDIA [Suspect]
     Dosage: 4MG PER DAY
     Route: 048
     Dates: start: 20080801, end: 20101001
  2. ASACOL [Concomitant]
  3. SPIRIVA [Concomitant]
  4. ALBUTEROL [Concomitant]
  5. PREDNISONE [Concomitant]
  6. WELCHOL [Concomitant]
  7. COREG [Concomitant]
  8. COZAAR [Concomitant]
  9. FORTEO [Concomitant]
  10. UNSPECIFIED MEDICATION [Concomitant]
  11. AVODART [Concomitant]
  12. SINGULAIR [Concomitant]
  13. AMLODIPINE [Concomitant]
  14. ONGLYZA [Concomitant]

REACTIONS (1)
  - DEATH [None]
